FAERS Safety Report 19119238 (Version 2)
Quarter: 2021Q2

REPORT INFORMATION
  Report Type: Spontaneous
  Country: US (occurrence: US)
  Receive Date: 20210411
  Receipt Date: 20210429
  Transmission Date: 20210717
  Serious: Yes (Other)
  Sender: FDA-Public Use
  Company Number: US-009507513-2104USA001703

PATIENT
  Age: 57 Year
  Sex: Female

DRUGS (5)
  1. KEYTRUDA [Suspect]
     Active Substance: PEMBROLIZUMAB
     Indication: TRANSITIONAL CELL CARCINOMA
     Dosage: 200 MILLIGRAM (6 CYCLES)
     Route: 042
  2. METHOTREXATE. [Concomitant]
     Active Substance: METHOTREXATE
     Indication: TRANSITIONAL CELL CARCINOMA
     Dosage: 6 CYCLES OF NEOADJUVANT DOSE?DENSE
  3. VINBLASTINE SULFATE. [Concomitant]
     Active Substance: VINBLASTINE SULFATE
     Indication: TRANSITIONAL CELL CARCINOMA
     Dosage: 6 CYCLES OF NEOADJUVANT DOSE?DENSE
  4. ADRIAMYCIN [Concomitant]
     Active Substance: DOXORUBICIN HYDROCHLORIDE
     Indication: TRANSITIONAL CELL CARCINOMA
     Dosage: 6 CYCLES OF NEOADJUVANT DOSE?DENSE
  5. CISPLATIN. [Concomitant]
     Active Substance: CISPLATIN
     Indication: TRANSITIONAL CELL CARCINOMA
     Dosage: 6 CYCLES OF NEOADJUVANT DOSE?DENSE

REACTIONS (1)
  - Paraneoplastic pemphigus [Unknown]
